FAERS Safety Report 4577061-2 (Version None)
Quarter: 2005Q1

REPORT INFORMATION
  Report Type: 
  Country: None (occurrence: None)
  Receive Date: 20050210
  Receipt Date: 20050202
  Transmission Date: 20050727
  Serious: Yes (Hospitalization)
  Sender: FDA-Public Use
  Company Number: US-MERCK-0502USA00328

PATIENT
  Age: 42 Year
  Sex: Male

DRUGS (2)
  1. ZETIA [Suspect]
     Route: 048
  2. HYDRODIURIL [Concomitant]
     Route: 048

REACTIONS (1)
  - PANCREATITIS NECROTISING [None]
